FAERS Safety Report 12138442 (Version 5)
Quarter: 2018Q1

REPORT INFORMATION
  Report Type: Report from Study
  Country: CA (occurrence: CA)
  Receive Date: 20160302
  Receipt Date: 20180307
  Transmission Date: 20180508
  Serious: Yes (Other)
  Sender: FDA-Public Use
  Company Number: CA-TAKEDA-2016TUS003306

PATIENT
  Age: 71 Year
  Sex: Female

DRUGS (17)
  1. SALOFALK                           /00000301/ [Concomitant]
     Active Substance: MESALAMINE
     Dosage: 500 MG, BID
  2. D-TABS [Concomitant]
     Active Substance: CHOLECALCIFEROL
     Dosage: UNK
  3. PMS-GLYBURIDE [Concomitant]
     Dosage: 5 MG, UNK
  4. PMS RISEDRONATE [Concomitant]
     Dosage: 35 MG, UNK
  5. BISOPROLOL [Concomitant]
     Active Substance: BISOPROLOL
     Dosage: 10 MG, UNK
  6. INFLECTRA [Concomitant]
     Active Substance: INFLIXIMAB-DYYB
     Dosage: 300 MG, Q4WEEKS
     Route: 042
  7. VEDOLIZUMAB [Suspect]
     Active Substance: VEDOLIZUMAB
     Indication: COLITIS ULCERATIVE
     Dosage: 300 MG, UNK
     Route: 042
     Dates: start: 20150918, end: 20160429
  8. ASAPHEN [Concomitant]
     Active Substance: ASPIRIN
     Dosage: 80 MG, UNK
  9. AMLODIPINE [Concomitant]
     Active Substance: AMLODIPINE BESYLATE
     Dosage: 5 MG, UNK
  10. INFLECTRA [Concomitant]
     Active Substance: INFLIXIMAB-DYYB
     Indication: COLITIS ULCERATIVE
     Dosage: 300 MG, UNK
     Route: 042
     Dates: start: 20170928
  11. FLAGYL [Concomitant]
     Active Substance: METRONIDAZOLE\METRONIDAZOLE HYDROCHLORIDE
     Dosage: UNK
  12. DEXILANT [Concomitant]
     Active Substance: DEXLANSOPRAZOLE
     Dosage: 60 MG, UNK
  13. EUROFOLIC [Concomitant]
     Dosage: 5 MG, UNK
  14. TEVA-PREDNISONE [Concomitant]
     Active Substance: PREDNISONE
     Dosage: 5 MG, UNK
  15. EURO-SULFATE [Concomitant]
     Dosage: 300 MG, UNK
  16. PMS-METFORMIN [Concomitant]
     Dosage: 500 MG, UNK
  17. APO FENO SUPER [Concomitant]
     Dosage: 160 MG, UNK

REACTIONS (7)
  - Nausea [Not Recovered/Not Resolved]
  - Balance disorder [Unknown]
  - Crohn^s disease [Unknown]
  - Vision blurred [Unknown]
  - Blood pressure systolic increased [Unknown]
  - Dizziness [Not Recovered/Not Resolved]
  - Headache [Unknown]

NARRATIVE: CASE EVENT DATE: 2016
